FAERS Safety Report 13415100 (Version 1)
Quarter: 2017Q2

REPORT INFORMATION
  Report Type: Spontaneous
  Country: US (occurrence: US)
  Receive Date: 20170407
  Receipt Date: 20170407
  Transmission Date: 20170830
  Serious: Yes (Disabling)
  Sender: FDA-Public Use
  Company Number: None

PATIENT
  Age: 43 Year
  Sex: Female
  Weight: 61 kg

DRUGS (2)
  1. DEXILANT [Suspect]
     Active Substance: DEXLANSOPRAZOLE
     Indication: ABDOMINAL PAIN
     Route: 048
     Dates: start: 20170210, end: 20170211
  2. VALERIANA [Concomitant]
     Active Substance: VALERIAN

REACTIONS (29)
  - Dizziness [None]
  - Pain in jaw [None]
  - Memory impairment [None]
  - Upper respiratory tract infection [None]
  - Dyspnoea [None]
  - Swelling [None]
  - Vaginal infection [None]
  - Abdominal pain [None]
  - Chest pain [None]
  - Arthralgia [None]
  - Dysgeusia [None]
  - Vertigo [None]
  - Confusional state [None]
  - Musculoskeletal stiffness [None]
  - Back pain [None]
  - Blood bilirubin increased [None]
  - Sinusitis [None]
  - Heart rate increased [None]
  - Heart rate irregular [None]
  - Headache [None]
  - Migraine [None]
  - Tinnitus [None]
  - Syncope [None]
  - Decreased appetite [None]
  - Weight decreased [None]
  - Pain in extremity [None]
  - Vision blurred [None]
  - Neck pain [None]
  - Arrhythmia [None]

NARRATIVE: CASE EVENT DATE: 20170210
